FAERS Safety Report 4627006-1 (Version None)
Quarter: 2005Q1

REPORT INFORMATION
  Report Type: 
  Country: None (occurrence: None)
  Receive Date: 20050331
  Receipt Date: 20050321
  Transmission Date: 20050727
  Serious: Yes (Hospitalization)
  Sender: FDA-Public Use
  Company Number: 2005042362

PATIENT
  Age: 29 Year
  Sex: Female
  Weight: 131 kg

DRUGS (5)
  1. PREGABALIN (PREGABALIN) [Suspect]
     Indication: PARTIAL SEIZURES
     Dosage: 600 MG (300 MG, 2 IN 1 D), ORAL
     Route: 048
     Dates: start: 20041124, end: 20050310
  2. TOPIRAMATE [Concomitant]
  3. LEVETIRACETAM [Concomitant]
  4. CLOBAZAM (CLOBAZAM) [Concomitant]
  5. CITALOPRAM (CIITALOPRAM) [Concomitant]

REACTIONS (2)
  - COMPLEX PARTIAL SEIZURES [None]
  - CONDITION AGGRAVATED [None]
